FAERS Safety Report 8020181-0 (Version None)
Quarter: 2012Q1

REPORT INFORMATION
  Report Type: 
  Country: None (occurrence: None)
  Receive Date: 20120103
  Receipt Date: 20111222
  Transmission Date: 20120608
  Serious: Yes (Hospitalization)
  Sender: FDA-Public Use
  Company Number: US-ELI_LILLY_AND_COMPANY-US201112006852

PATIENT
  Sex: Female
  Weight: 45.91 kg

DRUGS (13)
  1. LANSOPRAZOLE [Concomitant]
     Indication: BARRETT'S OESOPHAGUS
     Dosage: 30 MG, QD
     Route: 048
     Dates: start: 20030101
  2. FOLIC ACID [Concomitant]
     Indication: PREMEDICATION
     Dosage: 1 MG, UNK
     Route: 048
     Dates: start: 20111102
  3. DEXAMETHASONE [Concomitant]
     Indication: PREMEDICATION
     Dosage: 4 MG, BID
     Route: 048
     Dates: start: 20111107
  4. VITAMIN B-12 [Concomitant]
     Indication: PREMEDICATION
     Dosage: 100 MG, EVERY 9 WEEKS
     Route: 030
     Dates: start: 20111101
  5. MIRALAX [Concomitant]
     Indication: CONSTIPATION
     Dosage: 17 G, QD
     Route: 048
     Dates: start: 20111113
  6. CARBOPLATIN [Suspect]
     Indication: NON-SMALL CELL LUNG CANCER
     Dosage: 500 MG, EVERY 21 DAYS
     Route: 042
     Dates: start: 20111108, end: 20111129
  7. METOPROLOL TARTRATE [Concomitant]
     Indication: HYPERTENSION
     Dosage: 25 MG, UNK
     Route: 048
     Dates: start: 20080101
  8. KLOR-CON [Concomitant]
     Indication: HYPOKALAEMIA
     Dosage: 10 MEQ, TID
     Route: 048
     Dates: start: 20010101
  9. PEMETREXED [Suspect]
     Indication: NON-SMALL CELL LUNG CANCER
     Dosage: 750 MG, EVERY 21 DAYS
     Route: 042
     Dates: start: 20111108, end: 20111129
  10. ACETYLSALICYLIC ACID SRT [Concomitant]
     Indication: PROPHYLAXIS
     Dosage: 81 MG, QD
     Route: 048
     Dates: start: 20111101
  11. MULTI-VITAMIN [Concomitant]
     Indication: MEDICAL DIET
     Dosage: 1 TAB, QD
     Dates: start: 20000101
  12. TRIAMTERENE AND HYDROCHLOROTHIAZID [Concomitant]
     Indication: HYPERTENSION
     Dosage: 75/25
     Route: 048
     Dates: start: 20030101
  13. COMPAZINE [Concomitant]
     Indication: NAUSEA
     Dosage: 10 MG, PRN
     Route: 048
     Dates: start: 20111108

REACTIONS (2)
  - DEHYDRATION [None]
  - ANAEMIA [None]
